FAERS Safety Report 5214193-X (Version None)
Quarter: 2007Q1

REPORT INFORMATION
  Report Type: 
  Country: None (occurrence: None)
  Receive Date: 20070122
  Receipt Date: 20070112
  Transmission Date: 20070707
  Serious: Yes (Hospitalization)
  Sender: FDA-Public Use
  Company Number: US-ROCHE-471002

PATIENT
  Age: 71 Year
  Sex: Female
  Weight: 61.2 kg

DRUGS (4)
  1. BONIVA [Suspect]
     Indication: OSTEOPOROSIS PROPHYLAXIS
     Route: 048
     Dates: start: 20060901, end: 20060901
  2. THYROID HORMONE NOS [Concomitant]
  3. ADVAIR DISKUS 100/50 [Concomitant]
     Dosage: ADVAIR 250/50
  4. SINGULAIR [Concomitant]

REACTIONS (10)
  - ARTHRALGIA [None]
  - ARTHRITIS [None]
  - DEPRESSION [None]
  - FATIGUE [None]
  - INFLUENZA LIKE ILLNESS [None]
  - JOINT SWELLING [None]
  - LETHARGY [None]
  - MYELITIS TRANSVERSE [None]
  - NAUSEA [None]
  - SPINAL CORD INFARCTION [None]
